FAERS Safety Report 22001410 (Version 1)
Quarter: 2023Q1

REPORT INFORMATION
  Report Type: Spontaneous
  Country: CN (occurrence: CN)
  Receive Date: 20230216
  Receipt Date: 20230216
  Transmission Date: 20230418
  Serious: Yes (Hospitalization)
  Sender: FDA-Public Use
  Company Number: CN-PFIZER INC-PV202300027677

PATIENT
  Age: 80 Year
  Sex: Female
  Weight: 65 kg

DRUGS (4)
  1. NIRMATRELVIR\RITONAVIR [Suspect]
     Active Substance: NIRMATRELVIR\RITONAVIR
     Indication: Pneumonia viral
     Dosage: 3 DF, 2X/DAY
     Route: 048
     Dates: start: 20230111, end: 20230111
  2. NIRMATRELVIR\RITONAVIR [Suspect]
     Active Substance: NIRMATRELVIR\RITONAVIR
     Indication: COVID-19
  3. HYDROCHLOROTHIAZIDE\IRBESARTAN [Concomitant]
     Active Substance: HYDROCHLOROTHIAZIDE\IRBESARTAN
     Indication: Hypertension
     Dosage: 1 DF, 1X/DAY
     Route: 048
     Dates: start: 20230111, end: 20230111
  4. NIFEDIPINE [Concomitant]
     Active Substance: NIFEDIPINE
     Indication: Hypertension
     Dosage: 1 DF, 1X/DAY
     Route: 048
     Dates: start: 20230111, end: 20230111

REACTIONS (3)
  - Hypotension [Not Recovered/Not Resolved]
  - Dehydration [Unknown]
  - Hyperphagia [Unknown]

NARRATIVE: CASE EVENT DATE: 20230111
